FAERS Safety Report 16666908 (Version 5)
Quarter: 2020Q3

REPORT INFORMATION
  Report Type: Report from Study
  Country: JP (occurrence: JP)
  Receive Date: 20190805
  Receipt Date: 20200923
  Transmission Date: 20201102
  Serious: Yes (Death, Hospitalization, Other)
  Sender: FDA-Public Use
  Company Number: JP-ASTELLAS-2019JP016667

PATIENT
  Age: 59 Year
  Sex: Female
  Weight: 48 kg

DRUGS (7)
  1. FLUCONAZOLE. [Concomitant]
     Active Substance: FLUCONAZOLE
     Indication: PROPHYLAXIS
     Dosage: 100 MG/DAY, UNKNOWN FREQ.
     Route: 048
     Dates: end: 20190702
  2. ASP2215 [Suspect]
     Active Substance: GILTERITINIB
     Indication: ACUTE MYELOID LEUKAEMIA
     Route: 048
     Dates: start: 20190211, end: 20190702
  3. URSO [Concomitant]
     Active Substance: URSODIOL
     Indication: PROPHYLAXIS
     Dosage: 600 MG/DAY, UNKNOWN FREQ.
     Route: 048
     Dates: end: 20190702
  4. DAIPHEN [Concomitant]
     Active Substance: SULFAMETHOXAZOLE\TRIMETHOPRIM
     Indication: PROPHYLAXIS
     Dosage: 1 DF/DAY, UNKNOWN FREQ.
     Route: 048
     Dates: end: 20190702
  5. POLAPREZINC [Concomitant]
     Active Substance: POLAPREZINC
     Indication: PROPHYLAXIS
     Dosage: 150 MG/DAY, UNKNOWN FREQ.
     Route: 048
     Dates: end: 20190702
  6. ACICLOVIR [Concomitant]
     Active Substance: ACYCLOVIR
     Indication: PROPHYLAXIS
     Dosage: 100 MG/DAY, UNKNOWN FREQ.
     Route: 048
     Dates: end: 20190702
  7. OMEPRAZOLE. [Concomitant]
     Active Substance: OMEPRAZOLE
     Indication: PROPHYLAXIS
     Dosage: 10 MG/DAY, UNKNOWN FREQ.
     Route: 048
     Dates: end: 20190702

REACTIONS (5)
  - Pneumonia [Fatal]
  - Hepatic function abnormal [Not Recovered/Not Resolved]
  - Cytopenia [Not Recovered/Not Resolved]
  - Enteritis infectious [Not Recovered/Not Resolved]
  - Renal disorder [Not Recovered/Not Resolved]

NARRATIVE: CASE EVENT DATE: 20190327
